FAERS Safety Report 23421751 (Version 2)
Quarter: 2024Q1

REPORT INFORMATION
  Report Type: Spontaneous
  Country: US (occurrence: US)
  Receive Date: 20240119
  Receipt Date: 20240126
  Transmission Date: 20240410
  Serious: No
  Sender: FDA-Public Use
  Company Number: US-PFIZER INC-202400016022

PATIENT
  Age: 49 Year
  Sex: Female

DRUGS (2)
  1. ZAVZPRET [Suspect]
     Active Substance: ZAVEGEPANT HYDROCHLORIDE
     Indication: Migraine
     Dosage: 10 MG
     Route: 045
  2. AIMOVIG [Concomitant]
     Active Substance: ERENUMAB-AOOE
     Indication: Migraine
     Dosage: UNK

REACTIONS (2)
  - Application site burn [Recovered/Resolved]
  - Burning sensation [Recovered/Resolved]
